FAERS Safety Report 7586527-2 (Version None)
Quarter: 2011Q2

REPORT INFORMATION
  Report Type: 
  Country: None (occurrence: None)
  Receive Date: 20110630
  Receipt Date: 20110630
  Transmission Date: 20111010
  Serious: Yes (Life-Threatening, Hospitalization)
  Sender: FDA-Public Use
  Company Number: None

PATIENT
  Sex: Male
  Weight: 93.441 kg

DRUGS (1)
  1. PHENYLEPHRINE HCL [Suspect]
     Indication: NASAL CONGESTION
     Dosage: 2 TABLETS EVERY 4 HOURS MOUTH
     Route: 048
     Dates: start: 20110422

REACTIONS (5)
  - DRUG HYPERSENSITIVITY [None]
  - LIP SWELLING [None]
  - APPARENT DEATH [None]
  - AURICULAR SWELLING [None]
  - SWELLING FACE [None]
